FAERS Safety Report 10649137 (Version 2)
Quarter: 2014Q4

REPORT INFORMATION
  Report Type: Spontaneous
  Country: US (occurrence: US)
  Receive Date: 20141212
  Receipt Date: 20141212
  Transmission Date: 20150529
  Serious: Yes (Hospitalization, Disabling, Other)
  Sender: FDA-Public Use
  Company Number: US-009507513-0808USA01993

PATIENT
  Sex: Female
  Weight: 74.39 kg

DRUGS (3)
  1. FOSAMAX [Suspect]
     Active Substance: ALENDRONATE SODIUM
     Indication: OSTEOPENIA
     Dosage: 70 MG, QW
     Route: 048
     Dates: start: 20011206, end: 20060320
  2. FOSAMAX PLUS D [Suspect]
     Active Substance: ALENDRONATE SODIUM\CHOLECALCIFEROL
     Indication: OSTEOPOROSIS
     Route: 048
     Dates: start: 20060320, end: 20070719
  3. FOSAMAX [Suspect]
     Active Substance: ALENDRONATE SODIUM
     Indication: OSTEOPOROSIS PROPHYLAXIS

REACTIONS (30)
  - Low turnover osteopathy [Unknown]
  - Hepatic enzyme increased [Recovering/Resolving]
  - Headache [Unknown]
  - Vitamin D deficiency [Unknown]
  - Haemangioma of bone [Unknown]
  - Hypokalaemia [Recovered/Resolved]
  - Hypertension [Unknown]
  - Impaired healing [Unknown]
  - Rhinitis [Unknown]
  - Osteoporosis [Unknown]
  - Hypercholesterolaemia [Unknown]
  - Anaemia postoperative [Unknown]
  - Exostosis [Unknown]
  - Weight decreased [Unknown]
  - Wrist fracture [Unknown]
  - Device intolerance [Unknown]
  - Fall [Unknown]
  - Urinary tract infection [Unknown]
  - Electrolyte imbalance [Unknown]
  - Femur fracture [Unknown]
  - Hypophosphataemia [Recovered/Resolved]
  - Gingival recession [Unknown]
  - Cataract operation [Unknown]
  - Femur fracture [Unknown]
  - Foot fracture [Unknown]
  - Renal cyst [Unknown]
  - Muscle strain [Unknown]
  - Foot fracture [Unknown]
  - Mammogram abnormal [Unknown]
  - Osteoarthritis [Unknown]

NARRATIVE: CASE EVENT DATE: 2004
